FAERS Safety Report 7154234-6 (Version None)
Quarter: 2010Q4

REPORT INFORMATION
  Report Type: 
  Country: None (occurrence: None)
  Receive Date: 20101213
  Receipt Date: 20090518
  Transmission Date: 20110411
  Serious: Yes (Death, Hospitalization)
  Sender: FDA-Public Use
  Company Number: AT-ROCHE-576264

PATIENT
  Sex: Female
  Weight: 40 kg

DRUGS (96)
  1. BLINDED BEVACIZUMAB [Suspect]
     Indication: DIFFUSE LARGE B-CELL LYMPHOMA
     Dosage: DOSE BLINDED; THERAPY INTERRUPTED
     Route: 042
     Dates: start: 20080624, end: 20080826
  2. BLINDED BEVACIZUMAB [Suspect]
     Dosage: LAST DOSE PRIOR TO SAE REPORTED AS 09 OCTOBER 2008.
     Route: 042
     Dates: start: 20081009, end: 20081023
  3. BLINDED BEVACIZUMAB [Suspect]
     Dosage: LAST DOSE PRIOR TO SAE: 09 OCTOBER 2008.
     Route: 042
  4. RITUXIMAB [Suspect]
     Indication: DIFFUSE LARGE B-CELL LYMPHOMA
     Dosage: THERAPY INTERRUPTED. LAST DOSE PRIOR TO SAE: 26 AUGUST 2008
     Route: 042
     Dates: start: 20080626, end: 20080826
  5. RITUXIMAB [Suspect]
     Route: 042
     Dates: start: 20081009, end: 20081023
  6. RITUXIMAB [Suspect]
     Route: 042
  7. CYCLOPHOSPHAMIDE [Suspect]
     Indication: DIFFUSE LARGE B-CELL LYMPHOMA
     Route: 042
     Dates: start: 20080625, end: 20081009
  8. CYCLOPHOSPHAMIDE [Suspect]
     Dosage: LAST DOSE PRIOR TO SAE: 26 AUGUST 2008.
     Route: 042
  9. DOXORUBICIN [Suspect]
     Indication: DIFFUSE LARGE B-CELL LYMPHOMA
     Route: 042
     Dates: start: 20080625, end: 20081009
  10. DOXORUBICIN [Suspect]
     Dosage: LAST DOSE PRIOR TO SAE: 26 AUGUST 2008.
     Route: 042
  11. PREDNISONE [Suspect]
     Indication: DIFFUSE LARGE B-CELL LYMPHOMA
     Route: 048
     Dates: start: 20080625, end: 20081009
  12. PREDNISONE [Suspect]
     Dosage: LAST DOSE PRIOR TO SAE: 26 AUGUST 2008.
     Route: 048
  13. VINCRISTINE [Suspect]
     Indication: DIFFUSE LARGE B-CELL LYMPHOMA
     Route: 042
     Dates: start: 20080625, end: 20081009
  14. VINCRISTINE [Suspect]
     Dosage: LAST DOSE PRIOR TO SAE: 26 AUGUST 2008.
     Route: 042
  15. LOVENOX [Concomitant]
     Dates: start: 20080703, end: 20090912
  16. LOVENOX [Concomitant]
     Dates: start: 20080716, end: 20080729
  17. LOVENOX [Concomitant]
     Dates: start: 20081114
  18. LOVENOX [Concomitant]
     Dates: start: 20081207
  19. LOVENOX [Concomitant]
     Dates: start: 20081218, end: 20090118
  20. LOVENOX [Concomitant]
     Dates: start: 20090215, end: 20090221
  21. LOVENOX [Concomitant]
     Dates: start: 20090514
  22. LOVENOX [Concomitant]
     Dates: start: 20090426, end: 20090506
  23. LOVENOX [Concomitant]
     Dates: start: 20090619, end: 20090622
  24. LOVENOX [Concomitant]
  25. PANTOLOC [Concomitant]
     Dates: start: 20080624, end: 20081116
  26. PANTOLOC [Concomitant]
     Dates: start: 20081117
  27. PANTOLOC [Concomitant]
     Dates: start: 20090516
  28. PANTOLOC [Concomitant]
     Dates: start: 20081207
  29. PANTOLOC [Concomitant]
     Dates: start: 20080703, end: 20090912
  30. HEXORAL [Concomitant]
     Dates: start: 20080624
  31. HEXORAL [Concomitant]
     Dosage: DOSE: 4X
     Dates: start: 20090202
  32. HEXORAL [Concomitant]
     Dosage: TDD REPORTED AS 4X
     Dates: start: 20080701, end: 20090912
  33. MYCOSTATIN [Concomitant]
     Dates: start: 20080624
  34. MYCOSTATIN [Concomitant]
     Dates: start: 20090202
  35. MYCOSTATIN [Concomitant]
     Dosage: TDD REPORTED AS 4X.
     Dates: start: 20090701, end: 20090912
  36. UROSIN [Concomitant]
     Dates: start: 20080624
  37. UROSIN [Concomitant]
  38. UROSIN [Concomitant]
     Dosage: TOTAL DAILY DOSE: 320
     Dates: start: 20090202, end: 20090217
  39. MOTILIUM [Concomitant]
     Dosage: DRUG NAME: MOTILIUM SUSP
     Dates: start: 20080922, end: 20081005
  40. AVELOX [Concomitant]
     Dates: start: 20081207, end: 20081215
  41. ZOVIRAX [Concomitant]
     Dates: start: 20081207, end: 20081215
  42. ZOVIRAX [Concomitant]
     Dates: start: 20090630
  43. NEUPOGEN [Concomitant]
     Dates: start: 20081207, end: 20081215
  44. AUGMENTIN [Concomitant]
  45. AUGMENTIN [Concomitant]
     Dates: start: 20081211
  46. AMPHOTERICIN B [Concomitant]
     Dates: start: 20081208, end: 20081215
  47. AMPHOTERICIN B [Concomitant]
     Dates: start: 20090803, end: 20090912
  48. SERACTIL [Concomitant]
     Dates: start: 20081212, end: 20081216
  49. KCL-RETARD [Concomitant]
     Dosage: REPORTED AS KCL RET; TOTAL DAILY DOSE: 2 X 7
     Dates: start: 20090202
  50. KCL-RETARD [Concomitant]
     Dates: start: 20090821, end: 20090912
  51. PASPERTIN [Concomitant]
     Dates: start: 20090216
  52. PASPERTIN [Concomitant]
     Dosage: TDD REPORTED 20GTT
     Dates: start: 20090703, end: 20090912
  53. SANGENOR [Concomitant]
     Dosage: TDD REPORTED AS 3X1.
     Dates: start: 20090217, end: 20090314
  54. AEROMUC [Concomitant]
     Dates: start: 20081115
  55. KALIORAL [Concomitant]
     Dosage: TOTAL DAILY DOSE: 2 X 1
     Dates: start: 20081116
  56. ELOZELL SPEZIAL [Concomitant]
     Dates: start: 20081116, end: 20081116
  57. ELOZELL SPEZIAL [Concomitant]
     Dates: start: 20090906, end: 20090912
  58. ELOMEL [Concomitant]
     Dosage: DRUG: ELOMEL ISOTON
     Dates: start: 20081115
  59. ELOMEL [Concomitant]
     Dosage: DRUG NAME REPORTED AS: ELOMEL ISOMEL.
     Dates: start: 20090426, end: 20090428
  60. ELOMEL [Concomitant]
     Dates: start: 20090630, end: 20090809
  61. ELOMEL [Concomitant]
     Dates: start: 20090810, end: 20090820
  62. ELOMEL [Concomitant]
     Dates: start: 20090821, end: 20090912
  63. PARKEMED [Concomitant]
     Dates: start: 20081114, end: 20081114
  64. LASIX [Concomitant]
     Dates: start: 20090119, end: 20090119
  65. LASIX [Concomitant]
     Dates: start: 20090905, end: 20090912
  66. SODIUM CHLORIDE [Concomitant]
     Dates: start: 20090119, end: 20090119
  67. SODIUM CHLORIDE [Concomitant]
     Dates: start: 20090630, end: 20090810
  68. DALACIN [Concomitant]
     Dosage: TDD: 1800.
     Dates: start: 20090217, end: 20090310
  69. CANCIDAS [Concomitant]
     Dates: start: 20090219, end: 20090310
  70. ANAEROBEX [Concomitant]
     Dosage: TDD: 1500.
     Dates: start: 20090219, end: 20090302
  71. HALCION [Concomitant]
     Dates: start: 20090514
  72. HALCION [Concomitant]
     Dates: start: 20090426
  73. POTASSIUM CHLORIDE [Concomitant]
     Dates: start: 20090516
  74. ELOMEL [Concomitant]
     Dosage: DRUG NAME REPORTED AS : ELO ISOTON.
     Dates: start: 20090514, end: 20090516
  75. ELOMEL [Concomitant]
     Dates: start: 20090616, end: 20090622
  76. TRAZODONE HCL [Concomitant]
     Dates: start: 20090521, end: 20090912
  77. NOVABAN [Concomitant]
     Dosage: DOSE NOT LEGIBLE
     Dates: start: 20090630, end: 20090912
  78. BUSCOPAN [Concomitant]
     Dates: start: 20090630, end: 20090912
  79. ZOFRAN [Concomitant]
     Dates: start: 20090703, end: 20090912
  80. ZOFRAN ZIDIS [Concomitant]
     Dates: start: 20090705, end: 20090912
  81. PARACODINE [Concomitant]
     Dosage: TDD REPORTED AS 20GTT
     Dates: start: 20090708, end: 20090912
  82. KYTRIL [Concomitant]
     Dates: start: 20090707, end: 20090803
  83. VOLUVEN [Concomitant]
     Dosage: TDD REPORTED AS 500ML
     Dates: start: 20090727, end: 20090727
  84. PASSEDAN [Concomitant]
     Dosage: TD REPORTED AS 20GTT
     Dates: start: 20090801, end: 20090912
  85. PSYCHOPAX [Concomitant]
     Dosage: TDD REPORTED AS 5GTT
     Dates: start: 20090801, end: 20090912
  86. STRUCTOKABIVEN [Concomitant]
     Dates: start: 20090705, end: 20090912
  87. SANDOSTATIN [Concomitant]
     Dates: start: 20090719, end: 20090721
  88. SANDOSTATIN [Concomitant]
     Dates: start: 20090722, end: 20090726
  89. SANDOSTATIN [Concomitant]
     Dates: start: 20090727, end: 20090731
  90. SANDOSTATIN [Concomitant]
     Dates: start: 20090801, end: 20090804
  91. SANDOSTATIN [Concomitant]
     Dates: start: 20090805, end: 20090807
  92. SANDOSTATIN [Concomitant]
     Dates: start: 20090808, end: 20090808
  93. SANDOSTATIN [Concomitant]
     Dates: start: 20090809, end: 20090813
  94. SANDOSTATIN [Concomitant]
     Dates: start: 20090814, end: 20090814
  95. SANDOSTATIN [Concomitant]
     Dates: start: 20090815, end: 20090820
  96. SANDOSTATIN [Concomitant]
     Dates: start: 20090821, end: 20090912

REACTIONS (14)
  - BLOOD SODIUM DECREASED [None]
  - CARCINOID TUMOUR [None]
  - DIARRHOEA [None]
  - FEBRILE NEUTROPENIA [None]
  - HAEMATOCHEZIA [None]
  - HAEMODYNAMIC INSTABILITY [None]
  - LEUKOPENIA [None]
  - MALIGNANT NEOPLASM PROGRESSION [None]
  - MYELODYSPLASTIC SYNDROME [None]
  - NEUTROPENIA [None]
  - PANCYTOPENIA [None]
  - PYREXIA [None]
  - RECTAL ULCER [None]
  - RESPIRATORY FAILURE [None]
